FAERS Safety Report 9228315 (Version 2)
Quarter: 2013Q2

REPORT INFORMATION
  Report Type: Report from Study
  Country: SE (occurrence: SE)
  Receive Date: 20130412
  Receipt Date: 20130624
  Transmission Date: 20140414
  Serious: Yes (Death, Other)
  Sender: FDA-Public Use
  Company Number: SE-ROCHE-1211432

PATIENT
  Sex: 0

DRUGS (2)
  1. ALTEPLASE [Suspect]
     Indication: PERIPHERAL ISCHAEMIA
     Route: 013
  2. HEPARIN LEO [Suspect]
     Indication: PERIPHERAL ISCHAEMIA
     Route: 013

REACTIONS (9)
  - Drug ineffective [Unknown]
  - Drug effect decreased [Unknown]
  - Haemorrhage [Unknown]
  - Peripheral embolism [Unknown]
  - Compartment syndrome [Unknown]
  - Leg amputation [Unknown]
  - Cardiovascular disorder [Fatal]
  - Lung neoplasm malignant [Fatal]
  - Death [Fatal]
